FAERS Safety Report 9000020 (Version 7)
Quarter: 2013Q3

REPORT INFORMATION
  Report Type: Report from Study
  Country: JP (occurrence: JP)
  Receive Date: 20130102
  Receipt Date: 20130801
  Transmission Date: 20140515
  Serious: Yes (Hospitalization)
  Sender: FDA-Public Use
  Company Number: JP-PFIZER INC-2012328866

PATIENT
  Age: 84 Year
  Sex: Female
  Weight: 44 kg

DRUGS (3)
  1. XALKORI [Suspect]
     Indication: NON-SMALL CELL LUNG CANCER
     Dosage: 250 MG, SINGLE
     Route: 048
     Dates: start: 20121129, end: 20121129
  2. XALKORI [Suspect]
     Dosage: 200 MG, 2X/DAY
     Route: 048
     Dates: start: 20121129, end: 20121214
  3. WARFARIN [Suspect]
     Indication: PULMONARY ARTERY THROMBOSIS
     Dosage: 1 MG, 1X/DAY
     Route: 048
     Dates: end: 20121213

REACTIONS (3)
  - Vomiting [Recovering/Resolving]
  - Haematemesis [Recovered/Resolved]
  - Gastric ulcer [Recovering/Resolving]
